FAERS Safety Report 24150304 (Version 2)
Quarter: 2024Q3

REPORT INFORMATION
  Report Type: Report from Study
  Country: US (occurrence: US)
  Receive Date: 20240730
  Receipt Date: 20240816
  Transmission Date: 20241017
  Serious: Yes (Hospitalization, Other)
  Sender: JAZZ
  Company Number: US-JAZZ PHARMACEUTICALS-2024-US-002348

PATIENT
  Sex: Female

DRUGS (7)
  1. SODIUM OXYBATE [Suspect]
     Active Substance: SODIUM OXYBATE
     Indication: Narcolepsy
     Dosage: 2.25 GRAM, BID
  2. SODIUM OXYBATE [Suspect]
     Active Substance: SODIUM OXYBATE
     Indication: Cataplexy
     Dosage: UNK
  3. SODIUM OXYBATE [Suspect]
     Active Substance: SODIUM OXYBATE
     Indication: Somnolence
     Dosage: UNK
  4. OXYCODONE AND ACETAMINOPHEN [Concomitant]
     Active Substance: ACETAMINOPHEN\OXYCODONE HYDROCHLORIDE
     Dosage: 0000(5-325)
     Dates: start: 20240204
  5. KETOROLAC [Concomitant]
     Active Substance: KETOROLAC TROMETHAMINE
     Dosage: 0000
     Dates: start: 20240121
  6. MORNIFLUMATE [Concomitant]
     Active Substance: MORNIFLUMATE
     Dosage: UNK
     Dates: start: 20240501
  7. HIPREX [METHENAMINE HIPPURATE] [Concomitant]
     Dosage: UNK
     Dates: start: 20240501

REACTIONS (6)
  - Nephrolithiasis [Unknown]
  - Hospitalisation [Unknown]
  - Catastrophic reaction [Unknown]
  - Sleep paralysis [Unknown]
  - Treatment noncompliance [Unknown]
  - Product dose omission issue [Unknown]
